FAERS Safety Report 10076949 (Version 2)
Quarter: 2014Q2

REPORT INFORMATION
  Report Type: Spontaneous
  Country: PL (occurrence: None)
  Receive Date: 20140410
  Receipt Date: 20140418
  Transmission Date: 20141212
  Serious: Yes (Other)
  Sender: FDA-Public Use
  Company Number: 2014R1-79962

PATIENT
  Age: 86 Year
  Sex: Female

DRUGS (5)
  1. AMOXICILLIN CLAVULANATE [Suspect]
     Indication: PROPHYLAXIS
  2. CEFTRIAXONE [Suspect]
     Indication: PRODUCT USED FOR UNKNOWN INDICATION
  3. VANCOMYCIN [Suspect]
     Indication: PRODUCT USED FOR UNKNOWN INDICATION
  4. GENTAMICIN [Suspect]
     Indication: PRODUCT USED FOR UNKNOWN INDICATION
  5. RIFAMPICIN [Suspect]
     Indication: PRODUCT USED FOR UNKNOWN INDICATION

REACTIONS (9)
  - Electrocardiogram PR prolongation [None]
  - Bundle branch block left [None]
  - Sinus disorder [None]
  - Dysuria [None]
  - Renal impairment [None]
  - Drug resistance [None]
  - Staphylococcal infection [None]
  - Asthenia [None]
  - Enterococcal infection [None]
